FAERS Safety Report 7459823-7 (Version None)
Quarter: 2011Q2

REPORT INFORMATION
  Report Type: 
  Country: None (occurrence: None)
  Receive Date: 20110427
  Receipt Date: 20110414
  Transmission Date: 20111010
  Serious: Yes (Hospitalization)
  Sender: FDA-Public Use
  Company Number: GER/SPN/11/0017130

PATIENT
  Age: 65 Year
  Sex: Male

DRUGS (8)
  1. PENTOXIFYLLINE [Concomitant]
  2. INSULIN (INSULIN) [Concomitant]
  3. CANDESARTAN CILEXETIL [Concomitant]
  4. DILTIAZEM [Concomitant]
  5. CINITAPRIDE (CINITAPRIDE) [Concomitant]
  6. CLOPIDOGREL [Suspect]
     Indication: ANTIPLATELET THERAPY
  7. SIMVASTATIN [Concomitant]
  8. HYDROCHLOROTHIAZIDE [Concomitant]

REACTIONS (9)
  - MUCOSAL DISCOLOURATION [None]
  - HAEMATOCRIT DECREASED [None]
  - PLATELET COUNT INCREASED [None]
  - UPPER GASTROINTESTINAL HAEMORRHAGE [None]
  - HAEMOGLOBIN DECREASED [None]
  - HYPOTENSION [None]
  - HEART RATE INCREASED [None]
  - PALLOR [None]
  - POST PROCEDURAL COMPLICATION [None]
